FAERS Safety Report 21028662 (Version 2)
Quarter: 2022Q3

REPORT INFORMATION
  Report Type: Spontaneous
  Country: US (occurrence: US)
  Receive Date: 20220630
  Receipt Date: 20220712
  Transmission Date: 20221027
  Serious: No
  Sender: FDA-Public Use
  Company Number: US-MYLANLABS-2022M1047545

PATIENT
  Sex: Female
  Weight: 48.99 kg

DRUGS (1)
  1. ESTRADIOL TRANSDERMAL SYSTEM [Suspect]
     Active Substance: ESTRADIOL
     Indication: Product used for unknown indication
     Dosage: 0.1 MILLIGRAM, QD  (ONCE-WEEKLY),0.1MG/DAY, 1 PATCH WEEKLY.
     Route: 062

REACTIONS (4)
  - Drug hypersensitivity [Unknown]
  - Application site pruritus [Unknown]
  - Product adhesion issue [Unknown]
  - Product packaging issue [Unknown]
